FAERS Safety Report 8448849-2 (Version None)
Quarter: 2012Q2

REPORT INFORMATION
  Report Type: 
  Country: None (occurrence: None)
  Receive Date: 20120619
  Receipt Date: 20120605
  Transmission Date: 20120825
  Serious: No
  Sender: FDA-Public Use
  Company Number: US-ASTRAZENECA-2012SE37656

PATIENT
  Age: 61 Year
  Sex: Female
  Weight: 53.1 kg

DRUGS (3)
  1. SYMBICORT [Suspect]
     Indication: CHRONIC OBSTRUCTIVE PULMONARY DISEASE
     Dosage: 320 MCG, BID
     Route: 055
     Dates: start: 20080101
  2. SPIRIVA [Concomitant]
  3. LIBRAX [Concomitant]

REACTIONS (2)
  - DYSPNOEA [None]
  - DRUG INEFFECTIVE [None]
